FAERS Safety Report 7751594-X (Version None)
Quarter: 2011Q3

REPORT INFORMATION
  Report Type: 
  Country: None (occurrence: None)
  Receive Date: 20110914
  Receipt Date: 20110912
  Transmission Date: 20111222
  Serious: Yes (Death)
  Sender: FDA-Public Use
  Company Number: PHEH2011US03956

PATIENT
  Age: 56 Year
  Sex: Male
  Weight: 104.4 kg

DRUGS (1)
  1. GLEEVEC [Suspect]
     Indication: BRAIN NEOPLASM MALIGNANT
     Dosage: 400 MG, DAILY
     Route: 048
     Dates: start: 20110803

REACTIONS (1)
  - DEATH [None]
